FAERS Safety Report 12433234 (Version 2)
Quarter: 2016Q3

REPORT INFORMATION
  Report Type: Spontaneous
  Country: CA (occurrence: CA)
  Receive Date: 20160603
  Receipt Date: 20160701
  Transmission Date: 20161109
  Serious: Yes (Other)
  Sender: FDA-Public Use
  Company Number: CA-009507513-1606CAN000047

PATIENT
  Sex: Female
  Weight: 47 kg

DRUGS (1)
  1. ZEPATIER [Suspect]
     Active Substance: ELBASVIR\GRAZOPREVIR
     Indication: HEPATITIS C
     Dosage: 50 MG ELBASVIR 100 MG GAZOPREVIR, DAILY
     Route: 048
     Dates: start: 20160508

REACTIONS (1)
  - Infected skin ulcer [Not Recovered/Not Resolved]
